FAERS Safety Report 8238344-8 (Version None)
Quarter: 2012Q1

REPORT INFORMATION
  Report Type: 
  Country: None (occurrence: None)
  Receive Date: 20120327
  Receipt Date: 20120314
  Transmission Date: 20120608
  Serious: Yes (Other)
  Sender: FDA-Public Use
  Company Number: US-ROCHE-1052384

PATIENT
  Sex: Female

DRUGS (4)
  1. RECLAST [Suspect]
     Indication: OSTEOPOROSIS
     Dates: start: 20021001, end: 20090701
  2. ZOMETA [Suspect]
     Indication: OSTEOPOROSIS
     Dates: start: 20021001, end: 20090701
  3. BONIVA [Suspect]
     Indication: OSTEOPOROSIS
     Dates: start: 20021001, end: 20090701
  4. FOSAMAX [Suspect]
     Indication: OSTEOPOROSIS
     Dates: start: 20021001, end: 20090701

REACTIONS (1)
  - FEMUR FRACTURE [None]
